FAERS Safety Report 16638901 (Version 3)
Quarter: 2019Q3

REPORT INFORMATION
  Report Type: Spontaneous
  Country: JP (occurrence: JP)
  Receive Date: 20190726
  Receipt Date: 20190827
  Transmission Date: 20191004
  Serious: Yes (Hospitalization)
  Sender: FDA-Public Use
  Company Number: JP-ASTRAZENECA-2019SF00903

PATIENT
  Age: 27969 Day
  Sex: Female
  Weight: 37 kg

DRUGS (9)
  1. SOLU-CORTEF [Suspect]
     Active Substance: HYDROCORTISONE SODIUM SUCCINATE
     Indication: MENIERE^S DISEASE
     Route: 042
     Dates: start: 20190704, end: 20190708
  2. PRAVASTATIN NA [Suspect]
     Active Substance: PRAVASTATIN SODIUM
     Indication: DYSLIPIDAEMIA
     Route: 048
     Dates: start: 2017, end: 20190708
  3. METHYCOBAL [Suspect]
     Active Substance: METHYLCOBALAMIN
     Indication: MENIERE^S DISEASE
     Route: 048
     Dates: start: 20190705, end: 20190708
  4. PRIMPERAN [Suspect]
     Active Substance: METOCLOPRAMIDE HYDROCHLORIDE
     Indication: MENIERE^S DISEASE
     Route: 042
     Dates: start: 20190704, end: 20190708
  5. TRAVELMIN (DIPHENHYDRAMINE SALICYLATE/DIPROPHYLLINE) [Suspect]
     Active Substance: DIPHENHYDRAMINE SALICYLATE\DYPHYLLINE
     Indication: MENIERE^S DISEASE
     Dosage: 1.0DF AS REQUIRED
     Route: 048
     Dates: start: 20190705, end: 20190708
  6. XYZAL [Suspect]
     Active Substance: LEVOCETIRIZINE DIHYDROCHLORIDE
     Indication: VERTIGO
     Route: 048
     Dates: start: 2017, end: 20190708
  7. ISOBIDE [Suspect]
     Active Substance: ISOSORBIDE
     Indication: MENIERE^S DISEASE
     Route: 048
     Dates: start: 20190705, end: 20190708
  8. NEXIUM [Suspect]
     Active Substance: ESOMEPRAZOLE MAGNESIUM
     Indication: GASTRITIS
     Route: 048
     Dates: start: 201906, end: 20190708
  9. MAGNESIUM OXIDE. [Suspect]
     Active Substance: MAGNESIUM OXIDE
     Indication: CONSTIPATION
     Route: 048
     Dates: start: 2017

REACTIONS (3)
  - Hyponatraemia [Recovering/Resolving]
  - Inappropriate antidiuretic hormone secretion [Recovering/Resolving]
  - Vertigo [Recovering/Resolving]

NARRATIVE: CASE EVENT DATE: 20190704
